FAERS Safety Report 5124080-3 (Version None)
Quarter: 2006Q4

REPORT INFORMATION
  Report Type: 
  Country: None (occurrence: None)
  Receive Date: 20061010
  Receipt Date: 20051110
  Transmission Date: 20070319
  Serious: No
  Sender: FDA-Public Use
  Company Number: US-BRISTOL-MYERS SQUIBB COMPANY-13177589

PATIENT
  Age: 64 Year
  Sex: Female

DRUGS (2)
  1. AVAPRO [Suspect]
     Indication: BLOOD PRESSURE
  2. SYNTHROID [Concomitant]

REACTIONS (1)
  - DRUG INEFFECTIVE [None]
